FAERS Safety Report 7712336-7 (Version None)
Quarter: 2011Q3

REPORT INFORMATION
  Report Type: 
  Country: None (occurrence: None)
  Receive Date: 20110826
  Receipt Date: 20110819
  Transmission Date: 20111222
  Serious: Yes (Other)
  Sender: FDA-Public Use
  Company Number: JP-ROCHE-751729

PATIENT
  Sex: Female
  Weight: 49 kg

DRUGS (4)
  1. RHEUMATREX [Concomitant]
     Indication: RHEUMATOID ARTHRITIS
     Route: 048
     Dates: start: 20050518
  2. LANSOPRAZOLE [Concomitant]
     Dosage: NOTE: A DOSE
     Route: 048
     Dates: start: 20100728
  3. LOXONIN [Concomitant]
     Dosage: NOTE: A DOSE
     Route: 048
     Dates: start: 20100728
  4. ACTEMRA [Suspect]
     Indication: RHEUMATOID ARTHRITIS
     Route: 041
     Dates: start: 20100702, end: 20101221

REACTIONS (3)
  - ABDOMINAL PAIN [None]
  - DIARRHOEA [None]
  - HAEMATOCHEZIA [None]
